FAERS Safety Report 11656645 (Version 1)
Quarter: 2015Q4

REPORT INFORMATION
  Report Type: Report from Study
  Country: IT (occurrence: IT)
  Receive Date: 20151023
  Receipt Date: 20151023
  Transmission Date: 20160304
  Serious: Yes (Other)
  Sender: FDA-Public Use
  Company Number: IT-BAXALTA-2015BLT002291

PATIENT
  Age: 45 Year

DRUGS (3)
  1. ADVATE [Suspect]
     Active Substance: ANTIHEMOPHILIC FACTOR, HUMAN RECOMBINANT
     Indication: HAEMORRHAGE PROPHYLAXIS
     Dosage: UNK, 3X A WEEK
     Route: 065
     Dates: start: 2005
  2. ADVATE [Suspect]
     Active Substance: ANTIHEMOPHILIC FACTOR, HUMAN RECOMBINANT
     Dosage: 3000 IU, 3X A WEEK
     Route: 065
  3. HUMAN COAGULATION FACTOR VIII (RDNA) [Suspect]
     Active Substance: ANTIHEMOPHILIC FACTOR, HUMAN RECOMBINANT
     Indication: HAEMORRHAGE PROPHYLAXIS
     Dosage: UNK, 3X A WEEK
     Route: 065
     Dates: start: 2001

REACTIONS (12)
  - Liver disorder [Unknown]
  - Hepatitis C [Unknown]
  - Drug ineffective [Unknown]
  - Hepatitis B [Unknown]
  - Lymphadenopathy [Unknown]
  - Hepatitis C [Unknown]
  - Haemarthrosis [Unknown]
  - Neutropenia [Unknown]
  - Iatrogenic injury [None]
  - Haemophilic arthropathy [Unknown]
  - Joint ankylosis [Unknown]
  - Hypersplenism [Unknown]

NARRATIVE: CASE EVENT DATE: 2001
